FAERS Safety Report 17010162 (Version 12)
Quarter: 2022Q1

REPORT INFORMATION
  Report Type: Report from Study
  Country: DE (occurrence: DE)
  Receive Date: 20191108
  Receipt Date: 20220125
  Transmission Date: 20220423
  Serious: Yes (Hospitalization, Other)
  Sender: FDA-Public Use
  Company Number: DE-ROCHE-2121184

PATIENT
  Age: 50 Year
  Sex: Female

DRUGS (51)
  1. DICLOFENAC [Suspect]
     Active Substance: DICLOFENAC
     Indication: Back pain
     Dosage: 100 MILLIGRAM, QD (START 22-JAN-2019)
     Route: 048
  2. DICLOFENAC [Suspect]
     Active Substance: DICLOFENAC
     Indication: Sacral pain
     Dosage: UNK
     Route: 054
  3. DICLOFENAC [Suspect]
     Active Substance: DICLOFENAC
     Indication: Arthralgia
  4. AMITRIPTYLINE [Suspect]
     Active Substance: AMITRIPTYLINE
     Indication: Depression
     Dosage: 50 MILLIGRAM, QD, 0-0-1
     Route: 065
  5. AMITRIPTYLINE [Suspect]
     Active Substance: AMITRIPTYLINE
     Dosage: 10 MILLIGRAM, QD
  6. AMITRIPTYLINE [Suspect]
     Active Substance: AMITRIPTYLINE
     Dosage: 10 MILLIGRAM, QD (10 MG,QD (0-0-1))
  7. AMITRIPTYLINE [Suspect]
     Active Substance: AMITRIPTYLINE
     Dosage: 10 MILLIGRAM, QD (10 MG,QD (0-0-1))
     Route: 065
  8. AMITRIPTYLINE [Suspect]
     Active Substance: AMITRIPTYLINE
     Dosage: 50 MILLIGRAM, QD (50 MG, QD)
     Route: 065
  9. AMITRIPTYLINE [Suspect]
     Active Substance: AMITRIPTYLINE
     Dosage: 50 MILLIGRAM, QD (50 MG, QD)
     Route: 065
  10. OCREVUS [Suspect]
     Active Substance: OCRELIZUMAB
     Indication: Relapsing-remitting multiple sclerosis
     Dosage: 300 MILLIGRAM
     Route: 042
     Dates: start: 20180503, end: 20180503
  11. OCREVUS [Suspect]
     Active Substance: OCRELIZUMAB
     Dosage: 300 MILLIGRAM, SECOND DOSE
     Route: 042
     Dates: start: 20180517, end: 20180517
  12. OCREVUS [Suspect]
     Active Substance: OCRELIZUMAB
     Dosage: 600 MILLIGRAM, NEXT DOSE ON 09/JUN/2020
     Route: 042
     Dates: start: 20181106
  13. OCREVUS [Suspect]
     Active Substance: OCRELIZUMAB
     Dosage: 600 MILLIGRAM
     Route: 042
     Dates: start: 20201207
  14. OCREVUS [Suspect]
     Active Substance: OCRELIZUMAB
     Dosage: 600 MILLIGRAM
     Route: 042
     Dates: start: 20200609
  15. PANTOPRAZOLE SODIUM [Concomitant]
     Active Substance: PANTOPRAZOLE SODIUM
     Indication: Product used for unknown indication
     Dosage: 40 MILLIGRAM, QD, 1-0-0
     Route: 048
  16. PANTOPRAZOLE SODIUM [Concomitant]
     Active Substance: PANTOPRAZOLE SODIUM
     Dosage: 40 MILLIGRAM, QD (40 MG, QD (1-0-0))
     Route: 048
  17. PANTOPRAZOLE SODIUM [Concomitant]
     Active Substance: PANTOPRAZOLE SODIUM
     Dosage: 40 MILLIGRAM, QD (1-0-0)
     Route: 048
  18. RAMIPRIL [Concomitant]
     Active Substance: RAMIPRIL
     Indication: Hypertension
     Dosage: 10 MILLIGRAM, QD,  (1-0-1)
     Route: 065
  19. RAMIPRIL [Concomitant]
     Active Substance: RAMIPRIL
     Dosage: 2.5 MILLIGRAM, QD, (1-0-0)
  20. RAMIPRIL [Concomitant]
     Active Substance: RAMIPRIL
     Dosage: 2.5 MILLIGRAM, QD (2.5 MG, QD (1-0-0))
     Route: 065
  21. RAMIPRIL [Concomitant]
     Active Substance: RAMIPRIL
     Dosage: 2.5 MILLIGRAM, QD (1-0-0)
     Route: 065
  22. RAMIPRIL [Concomitant]
     Active Substance: RAMIPRIL
     Dosage: 10 MILLIGRAM, QD (10 MG, QD)
     Route: 065
  23. RAMIPRIL [Concomitant]
     Active Substance: RAMIPRIL
     Dosage: 10 MILLIGRAM, BID (1-0-1)
     Route: 065
  24. FOLIC ACID [Concomitant]
     Active Substance: FOLIC ACID
     Indication: Product used for unknown indication
     Dosage: 0.4 MILLIGRAM, QD
  25. BUDESONIDE [Concomitant]
     Active Substance: BUDESONIDE
     Indication: Product used for unknown indication
     Dosage: 4 DOSAGE FORM, QD, 2 HUBS PER DAY
  26. BUDESONIDE [Concomitant]
     Active Substance: BUDESONIDE
     Dosage: 2 DOSAGE FORM, QD (2 DF, QD (2 HUBS PER DAY))
     Route: 065
  27. ASPIRIN [Concomitant]
     Active Substance: ASPIRIN
     Indication: Product used for unknown indication
     Dosage: 100 MILLIGRAM, QD
     Route: 048
  28. CARBAMAZEPINE [Concomitant]
     Active Substance: CARBAMAZEPINE
     Indication: Product used for unknown indication
     Dosage: 400 MILLIGRAM, QD, 1-0-0
     Route: 048
  29. CARBAMAZEPINE [Concomitant]
     Active Substance: CARBAMAZEPINE
     Dosage: 400 MILLIGRAM, QD, (2-0-1) (SATART 01-AUG-2019)
     Route: 048
     Dates: start: 20190801
  30. CARBAMAZEPINE [Concomitant]
     Active Substance: CARBAMAZEPINE
     Dosage: 400 MILLIGRAM, QD, 0-1-0
     Route: 048
  31. CARBAMAZEPINE [Concomitant]
     Active Substance: CARBAMAZEPINE
     Dosage: 400 MILLIGRAM, QD
     Route: 048
  32. BACLOFENUM [Concomitant]
     Dosage: 75 MILLIGRAM, QD
  33. BACLOFENUM [Concomitant]
     Dosage: UNK, (10 MG - 15 MG - 25 MG), 0.33 DAY
  34. BACLOFENUM [Concomitant]
     Dosage: UNK, (15 MG - 15 MG - 25 MG), 0.33 DAY
     Route: 048
  35. BACLOFENUM [Concomitant]
     Dosage: 25 MILLIGRAM, (0.33 DAY)
  36. CHOLECALCIFEROL [Concomitant]
     Active Substance: CHOLECALCIFEROL
     Indication: Vitamin D deficiency
     Dosage: 20000 INTERNATIONAL UNIT, QW
  37. SELENIUM [Concomitant]
     Active Substance: SELENIUM
     Indication: Product used for unknown indication
     Dosage: UNK, QD
  38. ACYCLOVIR [Concomitant]
     Active Substance: ACYCLOVIR
     Indication: Product used for unknown indication
     Dosage: UNK, BID (1-0-1 FOR FOUR WEEKS)
     Route: 065
  39. ACYCLOVIR [Concomitant]
     Active Substance: ACYCLOVIR
     Dosage: 1-0-1 FOR FOUR WEEKS
  40. FOLIC ACID [Concomitant]
     Active Substance: FOLIC ACID
     Indication: Product used for unknown indication
     Dosage: 5 MILLIGRAM, QD
  41. MAGNESIUM [Concomitant]
     Active Substance: MAGNESIUM
     Indication: Muscle spasms
     Dosage: 400 MILLIGRAM, QD, 0-1-0
  42. MAGNESIUM [Concomitant]
     Active Substance: MAGNESIUM
     Dosage: 400 MILLIGRAM, QD (0-1-0)
     Route: 065
  43. ZINC [Concomitant]
     Active Substance: ZINC
     Indication: Product used for unknown indication
     Dosage: 400 MILLIGRAM
     Route: 065
  44. BACLOFEN [Concomitant]
     Active Substance: BACLOFEN
     Indication: Muscle spasticity
     Dosage: 15 MG - 15 MG - 25 MG
     Route: 048
  45. BACLOFEN [Concomitant]
     Active Substance: BACLOFEN
     Dosage: 10 MG - 15 MG - 25 MG
  46. BACLOFEN [Concomitant]
     Active Substance: BACLOFEN
     Dosage: 5 MILLIGRAM, 2-2-3
  47. BACLOFEN [Concomitant]
     Active Substance: BACLOFEN
     Dosage: 10 MG - 15 MG - 25 MG
  48. BACLOFEN [Concomitant]
     Active Substance: BACLOFEN
     Dosage: 10 MG - 5 MG - 20 MG
  49. BACLOFEN [Concomitant]
     Active Substance: BACLOFEN
     Dosage: 75 MILLIGRAM, QD
  50. BACLOFEN [Concomitant]
     Active Substance: BACLOFEN
     Dosage: 25 MILLIGRAM
     Route: 065
  51. BOTOX [Concomitant]
     Active Substance: ONABOTULINUMTOXINA
     Dosage: UNK

REACTIONS (46)
  - Fatigue [Unknown]
  - Gastroenteritis norovirus [Recovered/Resolved]
  - Multiple sclerosis relapse [Not Recovered/Not Resolved]
  - Osteoarthritis [Not Recovered/Not Resolved]
  - Spinal stenosis [Not Recovered/Not Resolved]
  - Back pain [Recovered/Resolved]
  - Norovirus infection [Recovered/Resolved]
  - Multiple sclerosis [Not Recovered/Not Resolved]
  - Meniscus injury [Recovered/Resolved]
  - C-reactive protein increased [Recovering/Resolving]
  - Cholelithiasis [Recovered/Resolved]
  - Chest discomfort [Not Recovered/Not Resolved]
  - Feeling abnormal [Not Recovered/Not Resolved]
  - Acquired diaphragmatic eventration [Not Recovered/Not Resolved]
  - Infusion related reaction [Recovered/Resolved]
  - Sacral pain [Not Recovered/Not Resolved]
  - Nasopharyngitis [Not Recovered/Not Resolved]
  - Migraine [Not Recovered/Not Resolved]
  - Memory impairment [Recovered/Resolved]
  - Infection [Recovered/Resolved]
  - Dyspepsia [Not Recovered/Not Resolved]
  - Dyspnoea [Not Recovered/Not Resolved]
  - Nausea [Recovered/Resolved]
  - Insomnia [Recovered/Resolved]
  - Abdominal pain upper [Recovered/Resolved]
  - Terminal insomnia [Recovering/Resolving]
  - Dizziness [Recovered/Resolved]
  - Headache [Recovered/Resolved]
  - Paraesthesia [Recovered/Resolved]
  - Pruritus [Recovered/Resolved]
  - Rash [Recovered/Resolved]
  - Urticaria [Recovered/Resolved]
  - Drug ineffective [Unknown]
  - Therapeutic product effect decreased [Recovered/Resolved]
  - Herpes virus infection [Recovered/Resolved]
  - Muscle spasticity [Recovering/Resolving]
  - Skin laceration [Recovered/Resolved]
  - Sleep disorder [Recovered/Resolved]
  - Sacroiliitis [Not Recovered/Not Resolved]
  - Joint arthroplasty [Recovered/Resolved]
  - Effusion [Not Recovered/Not Resolved]
  - Chondropathy [Not Recovered/Not Resolved]
  - Neuralgia [Recovered/Resolved]
  - White blood cell count decreased [Not Recovered/Not Resolved]
  - Infrapatellar fat pad inflammation [Not Recovered/Not Resolved]
  - Respiratory tract infection [Recovered/Resolved]

NARRATIVE: CASE EVENT DATE: 20180503
